FAERS Safety Report 4576164-6 (Version None)
Quarter: 2005Q1

REPORT INFORMATION
  Report Type: 
  Country: None (occurrence: None)
  Receive Date: 20050204
  Receipt Date: 20050124
  Transmission Date: 20050727
  Serious: Yes (Hospitalization, Other)
  Sender: FDA-Public Use
  Company Number: 2005019374

PATIENT
  Age: 55 Year
  Sex: Female

DRUGS (3)
  1. SULPERAZON           (SULBACTAM, CEFOPERAZONE) [Suspect]
     Indication: CHOLELITHIASIS
     Dosage: 2 GRAM (1 D), INTRAVNEOUS
     Route: 042
     Dates: start: 20050117, end: 20050118
  2. FAMOTIDINE [Suspect]
     Indication: ILL-DEFINED DISORDER
     Dosage: ORAL
     Route: 048
     Dates: start: 20050117, end: 20050118
  3. VOGLIBOSE               (VOGLIBOSE) [Concomitant]

REACTIONS (5)
  - BASOPHIL PERCENTAGE DECREASED [None]
  - EOSINOPHIL PERCENTAGE INCREASED [None]
  - LYMPHOCYTE PERCENTAGE INCREASED [None]
  - NEUTROPENIA [None]
  - WHITE BLOOD CELL COUNT DECREASED [None]
